FAERS Safety Report 4866014-2 (Version None)
Quarter: 2005Q4

REPORT INFORMATION
  Report Type: 
  Country: None (occurrence: None)
  Receive Date: 20051221
  Receipt Date: 20051212
  Transmission Date: 20060501
  Serious: No
  Sender: FDA-Public Use
  Company Number: 2005-135783-NL

PATIENT

DRUGS (3)
  1. MIRTAZAPINE [Suspect]
     Dosage: DF
  2. MORPHINE [Concomitant]
  3. CITALOPRAM HYDROBROMIDE [Concomitant]

REACTIONS (2)
  - HYPERHIDROSIS [None]
  - PLEURAL EFFUSION [None]
